FAERS Safety Report 20235562 (Version 2)
Quarter: 2022Q3

REPORT INFORMATION
  Report Type: Other
  Country: CA (occurrence: CA)
  Receive Date: 20211228
  Receipt Date: 20220727
  Transmission Date: 20221026
  Serious: Yes (Other)
  Sender: FDA-Public Use
  Company Number: CA-CELLTRION INC.-2021CA017508

PATIENT

DRUGS (15)
  1. RITUXIMAB [Suspect]
     Active Substance: RITUXIMAB
     Indication: Rheumatoid arthritis
     Dosage: 1000 MG
     Route: 042
  2. ACETAMINOPHEN [Concomitant]
     Active Substance: ACETAMINOPHEN
     Indication: Premedication
     Dosage: 650 MG
     Route: 048
  3. ACLASTA [Concomitant]
     Active Substance: ZOLEDRONIC ACID
  4. ATORVASTATIN [Concomitant]
     Active Substance: ATORVASTATIN
     Route: 048
  5. BISOPROLOL [Concomitant]
     Active Substance: BISOPROLOL
  6. CITALOPRAM [Concomitant]
     Active Substance: CITALOPRAM HYDROBROMIDE
     Dosage: UNK
  7. DIPHENHYDRAMINE HYDROCHLORIDE [Concomitant]
     Active Substance: DIPHENHYDRAMINE HYDROCHLORIDE
     Indication: Premedication
     Dosage: 50 MG
     Route: 048
  8. HYDROXYCHLOROQUINE SULFATE [Concomitant]
     Active Substance: HYDROXYCHLOROQUINE SULFATE
  9. METHOTREXATE [Concomitant]
     Active Substance: METHOTREXATE
     Route: 048
  10. METHYLPREDNISOLONE [Concomitant]
     Active Substance: METHYLPREDNISOLONE
     Indication: Premedication
     Dosage: 100 MG
     Route: 042
  11. OXAZEPAM [Concomitant]
     Active Substance: OXAZEPAM
  12. PREDNISONE [Concomitant]
     Active Substance: PREDNISONE
  13. SOLU-MEDROL [Concomitant]
     Active Substance: METHYLPREDNISOLONE SODIUM SUCCINATE
     Indication: Premedication
     Dosage: 100 MG
     Route: 042
  14. TAMSULOSIN [Concomitant]
     Active Substance: TAMSULOSIN
  15. ACETAMINOPHEN [Concomitant]
     Active Substance: ACETAMINOPHEN
     Indication: Premedication
     Dosage: 650 MILLIGRAM
     Route: 048

REACTIONS (6)
  - Cerebral disorder [Recovered/Resolved]
  - Ill-defined disorder [Recovered/Resolved]
  - Blood pressure fluctuation [Recovered/Resolved]
  - Blood pressure increased [Recovered/Resolved]
  - Urinary tract infection [Recovered/Resolved]
  - Product administration error [Recovered/Resolved]
